FAERS Safety Report 14839485 (Version 1)
Quarter: 2018Q2

REPORT INFORMATION
  Report Type: Spontaneous
  Country: CA (occurrence: CA)
  Receive Date: 20180502
  Receipt Date: 20180502
  Transmission Date: 20180711
  Serious: Yes (Other)
  Sender: FDA-Public Use
  Company Number: CA-TEVA-2018-CA-886737

PATIENT
  Age: 80 Year
  Sex: Male
  Weight: 79.45 kg

DRUGS (1)
  1. ACT PRAMIPEXOLE [Suspect]
     Active Substance: PRAMIPEXOLE
     Indication: FIBROMYALGIA
     Route: 048

REACTIONS (2)
  - Hiccups [Unknown]
  - Diaphragmatic spasm [Unknown]
